FAERS Safety Report 5265319-3 (Version None)
Quarter: 2007Q1

REPORT INFORMATION
  Report Type: 
  Country: None (occurrence: None)
  Receive Date: 20070314
  Receipt Date: 20070305
  Transmission Date: 20070707
  Serious: Yes (Life-Threatening, Hospitalization, Disabling)
  Sender: FDA-Public Use
  Company Number: ES-PFIZER INC-2007006201

PATIENT
  Sex: Male
  Weight: 41 kg

DRUGS (12)
  1. IRINOTECAN HCL [Suspect]
     Indication: RHABDOMYOSARCOMA
     Route: 042
     Dates: start: 20060906, end: 20060917
  2. CARBOPLATIN [Interacting]
     Indication: RHABDOMYOSARCOMA
     Route: 042
     Dates: start: 20060906, end: 20060906
  3. ONDANSETRON [Concomitant]
     Route: 042
     Dates: start: 20060906, end: 20060917
  4. LOPERAMIDE HCL [Concomitant]
     Route: 048
     Dates: start: 20060912, end: 20060917
  5. MORPHINE [Concomitant]
     Route: 048
     Dates: start: 20060915, end: 20061002
  6. COTRIM [Concomitant]
     Route: 048
     Dates: start: 20060906, end: 20061106
  7. OMEPRAZOLE [Concomitant]
     Route: 048
     Dates: start: 20060912, end: 20061106
  8. OMEPRAZOLE [Concomitant]
     Route: 042
  9. METOCLOPRAMIDE [Concomitant]
     Route: 048
     Dates: start: 20060912, end: 20060917
  10. METOCLOPRAMIDE [Concomitant]
     Route: 042
  11. ALPRAZOLAM [Concomitant]
     Route: 048
     Dates: start: 20060915, end: 20060917
  12. OCTREOTIDE ACETATE [Concomitant]
     Route: 042
     Dates: start: 20060917, end: 20060919

REACTIONS (7)
  - ASCITES [None]
  - CHRONIC HEPATITIS [None]
  - DRUG INTERACTION [None]
  - ENTEROCOLITIS [None]
  - NEUTROPENIA [None]
  - OEDEMA [None]
  - THROMBOCYTOPENIA [None]
